FAERS Safety Report 18128540 (Version 8)
Quarter: 2020Q4

REPORT INFORMATION
  Report Type: Report from Study
  Country: CH (occurrence: CH)
  Receive Date: 20200810
  Receipt Date: 20201222
  Transmission Date: 20210113
  Serious: Yes (Death, Hospitalization)
  Sender: FDA-Public Use
  Company Number: CH-EISAI MEDICAL RESEARCH-EC-2020-077378

PATIENT
  Age: 69 Year
  Sex: Male
  Weight: 63.8 kg

DRUGS (18)
  1. PEMBROLIZUMAB. [Suspect]
     Active Substance: PEMBROLIZUMAB
     Route: 041
     Dates: start: 20200618, end: 20200618
  2. MST CONTINUS [Concomitant]
     Active Substance: MORPHINE SULFATE
     Dates: start: 202001, end: 20200715
  3. SIMVASTATIN. [Concomitant]
     Active Substance: SIMVASTATIN
     Dates: start: 202001
  4. IBUPROFEN. [Concomitant]
     Active Substance: IBUPROFEN
     Dates: start: 20200527
  5. LENVATINIB [Suspect]
     Active Substance: LENVATINIB
     Route: 048
     Dates: start: 20200626, end: 20200703
  6. PEMBROLIZUMAB. [Suspect]
     Active Substance: PEMBROLIZUMAB
     Indication: NON-SMALL CELL LUNG CANCER
     Route: 041
     Dates: start: 20200211, end: 20200527
  7. TRANSIPEG [Concomitant]
     Dates: start: 202001
  8. SYRUP OF FIGS [Concomitant]
     Dates: start: 20200611
  9. PANTOZOL [Concomitant]
     Active Substance: PANTOPRAZOLE SODIUM
     Dates: start: 202001
  10. NOVALGIN [Concomitant]
     Dates: start: 20200211
  11. NOVALGIN [Concomitant]
     Dates: start: 20200303
  12. LENVATINIB [Suspect]
     Active Substance: LENVATINIB
     Indication: NON-SMALL CELL LUNG CANCER
     Dosage: STARTING DOSE AT 10 MG, FLUCTUATED DOSAGE
     Route: 048
     Dates: start: 20200211, end: 20200617
  13. ENALAPRIL MALEATE. [Concomitant]
     Active Substance: ENALAPRIL MALEATE
     Dates: start: 202001
  14. ASS CARDIO SPIRIG HC [Concomitant]
     Dates: start: 202001
  15. BEPANTHEN [Concomitant]
     Dates: start: 20200317
  16. PREGABALIN. [Concomitant]
     Active Substance: PREGABALIN
     Dates: start: 20200625, end: 20200707
  17. VITAMINS [Concomitant]
     Active Substance: VITAMINS
     Dates: start: 20200211
  18. COSOPT S [Concomitant]
     Dates: start: 20200211

REACTIONS (1)
  - Pneumonia [Recovered/Resolved]

NARRATIVE: CASE EVENT DATE: 20200709
